FAERS Safety Report 22072674 (Version 1)
Quarter: 2023Q1

REPORT INFORMATION
  Report Type: Spontaneous
  Country: FR (occurrence: FR)
  Receive Date: 20230308
  Receipt Date: 20230308
  Transmission Date: 20230418
  Serious: Yes (Hospitalization, Other)
  Sender: FDA-Public Use
  Company Number: None

PATIENT

DRUGS (3)
  1. BENLYSTA [Suspect]
     Active Substance: BELIMUMAB
     Indication: Chronic cutaneous lupus erythematosus
     Dosage: 10 MG/KG, MO;1X/MONTH
     Route: 042
     Dates: start: 20210830, end: 20221219
  2. RITUXIMAB [Suspect]
     Active Substance: RITUXIMAB
     Indication: Chronic cutaneous lupus erythematosus
     Dosage: 500 MG, UNK; 2X/YEAR 500 MG SEMI-ANNUAL
     Route: 042
     Dates: start: 20200706, end: 20221027
  3. PENTACARINAT [Suspect]
     Active Substance: PENTAMIDINE ISETHIONATE
     Indication: Prophylaxis
     Dosage: UNK
     Route: 055
     Dates: start: 202109, end: 20221219

REACTIONS (2)
  - Agranulocytosis [Recovered/Resolved]
  - Thrombotic microangiopathy [Recovering/Resolving]

NARRATIVE: CASE EVENT DATE: 20230116
